FAERS Safety Report 4801364-7 (Version None)
Quarter: 2005Q4

REPORT INFORMATION
  Report Type: 
  Country: None (occurrence: None)
  Receive Date: 20051012
  Receipt Date: 20051005
  Transmission Date: 20060501
  Serious: Yes (Death)
  Sender: FDA-Public Use
  Company Number: AZAAU200500219

PATIENT
  Age: 80 Year
  Sex: Male

DRUGS (13)
  1. AZACITIDINE (AZACITIDINE) (INJECTION) [Suspect]
     Indication: MYELODYSPLASTIC SYNDROME
     Dosage: 75 MG/M2 (148.5 MG, DAILY X 7 DAYS), SUBCUTANEOUS
     Route: 058
     Dates: start: 20050607, end: 20050613
  2. BETALOC (METOPROLOL TARTRATE) [Concomitant]
  3. LOSEC (OMEPRAZOLE) [Concomitant]
  4. VENTOLIN [Concomitant]
  5. ATROVENT [Concomitant]
  6. LASIX [Concomitant]
  7. PANADEINE FORTE (PANADEINE CO) (TABLETS) [Concomitant]
  8. KARVEZIDE (KARVEA HCT) (TABLETS) [Concomitant]
  9. LANOXIN [Concomitant]
  10. METOCLOPRAMIDE [Concomitant]
  11. COLOXYL WITH SENNA (COLOXYL WITH SENNA) [Concomitant]
  12. ALLOPURINOL [Concomitant]
  13. PREDNISONE [Concomitant]

REACTIONS (14)
  - ANAEMIA [None]
  - CARDIOGENIC SHOCK [None]
  - CHRONIC OBSTRUCTIVE PULMONARY DISEASE [None]
  - CONCOMITANT DISEASE PROGRESSION [None]
  - DYSPNOEA [None]
  - GENERAL PHYSICAL HEALTH DETERIORATION [None]
  - HYPOXIA [None]
  - INTESTINAL ISCHAEMIA [None]
  - MYELODYSPLASTIC SYNDROME [None]
  - NEUTROPENIA [None]
  - RENAL IMPAIRMENT [None]
  - RESPIRATORY ARREST [None]
  - RESPIRATORY FAILURE [None]
  - SEPSIS [None]
